FAERS Safety Report 9764571 (Version 3)
Quarter: 2014Q1

REPORT INFORMATION
  Report Type: Spontaneous
  Country: IT (occurrence: IT)
  Receive Date: 20131217
  Receipt Date: 20140213
  Transmission Date: 20141002
  Serious: Yes (Hospitalization)
  Sender: FDA-Public Use
  Company Number: IT-RANBAXY-2013RR-76229

PATIENT
  Age: 81 Year
  Sex: Male

DRUGS (7)
  1. CARVEDILOL [Suspect]
     Indication: PRODUCT USED FOR UNKNOWN INDICATION
     Dosage: 12.5 MG/DAY
     Route: 048
     Dates: start: 20121101
  2. RAMIPRIL [Suspect]
     Indication: PRODUCT USED FOR UNKNOWN INDICATION
     Dosage: 2.5 MG/DAY
     Route: 048
     Dates: start: 20130501
  3. LASIX [Suspect]
     Indication: HYPERTENSION
     Dosage: 2 DF/DAY
     Route: 048
     Dates: start: 20121201, end: 20131121
  4. ALDACTONE [Suspect]
     Dosage: 1 DF/DAY
     Route: 048
     Dates: start: 20130501
  5. MINITRAN [Concomitant]
     Indication: PRODUCT USED FOR UNKNOWN INDICATION
     Dosage: UNK
     Route: 065
  6. TORVAST [Concomitant]
     Indication: PRODUCT USED FOR UNKNOWN INDICATION
     Dosage: 20 MG
     Route: 048
  7. COUMADIN [Concomitant]
     Indication: PRODUCT USED FOR UNKNOWN INDICATION
     Dosage: UNK
     Route: 065

REACTIONS (3)
  - Hyperhidrosis [Recovering/Resolving]
  - Hypotension [Recovering/Resolving]
  - Presyncope [Recovering/Resolving]
